FAERS Safety Report 18573902 (Version 1)
Quarter: 2020Q4

REPORT INFORMATION
  Report Type: Spontaneous
  Country: CN (occurrence: CN)
  Receive Date: 20201203
  Receipt Date: 20201203
  Transmission Date: 20210114
  Serious: Yes (Disabling)
  Sender: FDA-Public Use
  Company Number: NVSC2020CN319216

PATIENT
  Age: 65 Year
  Sex: Female
  Weight: 55 kg

DRUGS (3)
  1. GASTRODIN. [Suspect]
     Active Substance: GASTRODIN
     Indication: CEREBRAL INFARCTION
     Dosage: 6 ML, QD (0.9% NS250ML+GASTRODIN INJECTION)
     Route: 041
     Dates: start: 20200901, end: 20200908
  2. ROSUVASTATIN CALCIUM. [Suspect]
     Active Substance: ROSUVASTATIN CALCIUM
     Indication: CEREBRAL INFARCTION
     Dosage: 1 DF, QD
     Route: 048
     Dates: start: 20200901, end: 20200908
  3. SODIUM CHLORIDE. [Concomitant]
     Active Substance: SODIUM CHLORIDE
     Indication: PRODUCT USED FOR UNKNOWN INDICATION
     Dosage: 250 ML, QD
     Route: 041
     Dates: start: 20200901, end: 20200908

REACTIONS (1)
  - Hepatic function abnormal [Recovering/Resolving]

NARRATIVE: CASE EVENT DATE: 20200909
